FAERS Safety Report 5415684-9 (Version None)
Quarter: 2007Q3

REPORT INFORMATION
  Report Type: 
  Country: None (occurrence: None)
  Receive Date: 20070815
  Receipt Date: 20070622
  Transmission Date: 20080115
  Serious: Yes (Other)
  Sender: FDA-Public Use
  Company Number: US-PURDUE-USA_2007_0028160

PATIENT
  Age: 37 Year
  Sex: Male
  Weight: 86 kg

DRUGS (1)
  1. OXYCONTIN [Suspect]
     Indication: NECK PAIN
     Dosage: UNK, SEE TEXT
     Dates: start: 19970428, end: 19990828

REACTIONS (17)
  - AMNESIA [None]
  - ANOREXIA [None]
  - ANXIETY [None]
  - BARRETT'S OESOPHAGUS [None]
  - DEPRESSION [None]
  - DIZZINESS [None]
  - DRUG DEPENDENCE [None]
  - DRUG WITHDRAWAL SYNDROME [None]
  - EMOTIONAL DISTRESS [None]
  - EUPHORIC MOOD [None]
  - JUDGEMENT IMPAIRED [None]
  - MOOD ALTERED [None]
  - MOOD SWINGS [None]
  - NAUSEA [None]
  - PANIC DISORDER [None]
  - SOCIAL AVOIDANT BEHAVIOUR [None]
  - SUICIDAL IDEATION [None]
